FAERS Safety Report 17136281 (Version 1)
Quarter: 2019Q4

REPORT INFORMATION
  Report Type: Spontaneous
  Country: US (occurrence: US)
  Receive Date: 20191210
  Receipt Date: 20191210
  Transmission Date: 20200122
  Serious: Yes (Hospitalization)
  Sender: FDA-Public Use
  Company Number: US-ASTRAZENECA-2019SF74447

PATIENT
  Sex: Female
  Weight: 68 kg

DRUGS (9)
  1. METOPROLOL. [Concomitant]
     Active Substance: METOPROLOL
  2. ZETIA [Concomitant]
     Active Substance: EZETIMIBE
     Indication: BLOOD CHOLESTEROL INCREASED
  3. AUGMENTIN GENERIC [Concomitant]
  4. SPIRIVA [Concomitant]
     Active Substance: TIOTROPIUM BROMIDE MONOHYDRATE
     Dosage: DAILY
  5. SYMBICORT [Suspect]
     Active Substance: BUDESONIDE\FORMOTEROL FUMARATE DIHYDRATE
     Indication: CHRONIC OBSTRUCTIVE PULMONARY DISEASE
     Dosage: 160 AND 4.5 MICROGRAMS
     Route: 055
  6. ALBUTEROL. [Concomitant]
     Active Substance: ALBUTEROL
  7. LEVOFLOXACIN. [Concomitant]
     Active Substance: LEVOFLOXACIN
  8. PREDNISONE GENERIC FOR DELTASONE [Concomitant]
  9. WARFARIN [Concomitant]
     Active Substance: WARFARIN

REACTIONS (13)
  - Oxygen saturation decreased [Unknown]
  - Memory impairment [Unknown]
  - Chronic obstructive pulmonary disease [Unknown]
  - Dyspnoea [Unknown]
  - Malaise [Unknown]
  - Wrong technique in device usage process [Unknown]
  - Product use issue [Unknown]
  - Cardiac disorder [Unknown]
  - Body height decreased [Unknown]
  - Pneumonia bacterial [Unknown]
  - Pneumonia [Unknown]
  - Incorrect dose administered [Unknown]
  - Hypoacusis [Unknown]
